FAERS Safety Report 19716463 (Version 1)
Quarter: 2021Q3

REPORT INFORMATION
  Report Type: Spontaneous
  Country: CA (occurrence: CA)
  Receive Date: 20210818
  Receipt Date: 20210818
  Transmission Date: 20211014
  Serious: Yes (Hospitalization, Other)
  Sender: FDA-Public Use
  Company Number: CA-ORGANON-1801CAN014527

PATIENT
  Age: 48 Year
  Sex: Female
  Weight: 106 kg

DRUGS (125)
  1. DIPROSONE [Suspect]
     Active Substance: BETAMETHASONE DIPROPIONATE
     Dosage: 2 EVERY 1 DAYS, (BID)
     Route: 065
  2. DEXAMETHASONE. [Suspect]
     Active Substance: DEXAMETHASONE
     Indication: SUPPORTIVE CARE
     Dosage: 20.0 MILLIGRAM; 1 EVERY 1 DAY(S) (QD) DOSAGE FORM: NOT SPECIFIED
     Route: 048
  3. DEXAMETHASONE. [Suspect]
     Active Substance: DEXAMETHASONE
     Dosage: UNK
     Route: 048
  4. LEVOFLOXACIN. [Suspect]
     Active Substance: LEVOFLOXACIN
     Dosage: DOSAGE FORM NOT SPECIFIED; 1 EVERY 1 DAYS
     Route: 048
  5. PROCYTOX [Suspect]
     Active Substance: CYCLOPHOSPHAMIDE
     Dosage: 1360 MG, 1 EVERY 2 WEEKS (CYCLICAL)
     Route: 042
  6. PROCYTOX [Suspect]
     Active Substance: CYCLOPHOSPHAMIDE
     Dosage: 1360 MG, 1 EVERY 14 DAYS
     Route: 042
  7. PROCYTOX [Suspect]
     Active Substance: CYCLOPHOSPHAMIDE
     Dosage: 1360 MG, 1 EVERY 2 WEEKS (CYCLICAL)
     Route: 042
  8. PROCYTOX [Suspect]
     Active Substance: CYCLOPHOSPHAMIDE
     Dosage: 1360 MG, 1 EVERY 14 DAYS
     Route: 042
  9. RANITIDINE. [Suspect]
     Active Substance: RANITIDINE
     Dosage: 150 MILLIGRAM, 1 EVERY 12 HOURS
     Route: 048
  10. TYLENOL WITH CODEINE [Suspect]
     Active Substance: ACETAMINOPHEN\CODEINE PHOSPHATE
     Dosage: DOSAGE FORM NOT SPECIFIED; 1 EVERY 4 HOURS
     Route: 065
  11. ONDANSETRON HYDROCHLORIDE. [Suspect]
     Active Substance: ONDANSETRON HYDROCHLORIDE
     Indication: SUPPORTIVE CARE
     Dosage: 8.0 MILLIGRAM, FREQUENCY 6 EVERY (1) DAY
     Route: 048
  12. ONDANSETRON HYDROCHLORIDE. [Suspect]
     Active Substance: ONDANSETRON HYDROCHLORIDE
     Dosage: 8 MILLIGRAM, QD
     Route: 048
  13. ONDANSETRON HYDROCHLORIDE. [Suspect]
     Active Substance: ONDANSETRON HYDROCHLORIDE
     Dosage: 8 MILLIGRAM, QD
     Route: 048
  14. ONDANSETRON HYDROCHLORIDE. [Suspect]
     Active Substance: ONDANSETRON HYDROCHLORIDE
     Dosage: UNK
     Route: 048
  15. DIPROSONE [Suspect]
     Active Substance: BETAMETHASONE DIPROPIONATE
     Indication: TARDIVE DYSKINESIA
     Dosage: 2 EVERY 1 DAYS, (BID)
     Route: 065
  16. DIPROSONE [Suspect]
     Active Substance: BETAMETHASONE DIPROPIONATE
     Dosage: 2 EVERY 1 DAYS, (BID)
     Route: 065
  17. APREPITANT. [Suspect]
     Active Substance: APREPITANT
     Indication: PRODUCT USED FOR UNKNOWN INDICATION
     Dosage: 125.0 MILLIGRAM; 1 EVERY 1 DAY(S) (QD)
     Route: 048
  18. APREPITANT. [Suspect]
     Active Substance: APREPITANT
     Dosage: UNK, EVERY DAY
     Route: 048
  19. APREPITANT. [Suspect]
     Active Substance: APREPITANT
     Dosage: UNK, EVERY DAY
     Route: 048
  20. DEXAMETHASONE. [Suspect]
     Active Substance: DEXAMETHASONE
     Dosage: UNK
     Route: 048
  21. DEXAMETHASONE. [Suspect]
     Active Substance: DEXAMETHASONE
     Dosage: UNK
  22. DOXORUBICIN HYDROCHLORIDE. [Suspect]
     Active Substance: DOXORUBICIN HYDROCHLORIDE
     Indication: BREAST CANCER
     Dosage: DOSAGE FORM: SOLUTION INTRAVENOUS/INJETION; 136.0 MILLIGRAM, 1 EVERY 14 DAY(S) / 1 EVERY 2 WEEK(S)/
     Route: 042
     Dates: start: 20161215, end: 20170126
  23. DOXORUBICIN HYDROCHLORIDE. [Suspect]
     Active Substance: DOXORUBICIN HYDROCHLORIDE
     Dosage: 136 MILLIGRAM, 1 EVERY 4 HOURS (Q4H)
     Route: 042
  24. ENOXAPARIN SODIUM. [Suspect]
     Active Substance: ENOXAPARIN SODIUM
     Dosage: UNK, 1 EVERY 1 DAYS (QD)
     Route: 058
  25. LEVOFLOXACIN. [Suspect]
     Active Substance: LEVOFLOXACIN
     Dosage: DOSAGE FORM NOT SPECIFIED; 1 EVERY 1 DAYS
     Route: 048
  26. METOCLOPRAMIDE. [Suspect]
     Active Substance: METOCLOPRAMIDE
     Dosage: 4 EVERY 1 DAY (QID)
     Route: 048
  27. METOCLOPRAMIDE. [Suspect]
     Active Substance: METOCLOPRAMIDE
     Dosage: 4 EVERY 1 DAY (QID)
     Route: 048
  28. PACLITAXEL. [Suspect]
     Active Substance: PACLITAXEL
     Dosage: DOSAGE FORM: LIQUID INTRAVENOUS
     Route: 042
  29. PROCYTOX [Suspect]
     Active Substance: CYCLOPHOSPHAMIDE
     Dosage: 1360 MG
     Route: 042
  30. RANITIDINE. [Suspect]
     Active Substance: RANITIDINE
     Dosage: 2 EVERY 1 DAY
     Route: 048
  31. RANITIDINE. [Suspect]
     Active Substance: RANITIDINE
     Dosage: 2 EVERY 1 DAY
     Route: 048
  32. RANITIDINE. [Suspect]
     Active Substance: RANITIDINE
     Dosage: 2 EVERY 1 DAY
     Route: 048
  33. TRASTUZUMAB. [Suspect]
     Active Substance: TRASTUZUMAB
     Dosage: 625 MILLIGRAM
     Route: 065
  34. TRASTUZUMAB. [Suspect]
     Active Substance: TRASTUZUMAB
     Dosage: UNK
     Route: 065
  35. TYLENOL WITH CODEINE [Suspect]
     Active Substance: ACETAMINOPHEN\CODEINE PHOSPHATE
     Dosage: DOSAGE FORM NOT SPECIFIED; 1 EVERY 4 HOURS
     Route: 065
  36. ONDANSETRON HYDROCHLORIDE. [Suspect]
     Active Substance: ONDANSETRON HYDROCHLORIDE
     Dosage: UNK
     Route: 048
  37. NEULASTA [Suspect]
     Active Substance: PEGFILGRASTIM
     Indication: PRODUCT USED FOR UNKNOWN INDICATION
     Dosage: UNK
     Route: 065
  38. NEULASTA [Suspect]
     Active Substance: PEGFILGRASTIM
     Dosage: UNK
     Route: 065
  39. NEULASTA [Suspect]
     Active Substance: PEGFILGRASTIM
     Dosage: UNK
     Route: 065
  40. APREPITANT. [Suspect]
     Active Substance: APREPITANT
     Dosage: 50.0 MILLIGRAM, QD (1 EVERY 1 DAY)
     Route: 065
  41. DEXAMETHASONE. [Suspect]
     Active Substance: DEXAMETHASONE
     Dosage: UNK
     Route: 048
  42. ENOXAPARIN SODIUM. [Suspect]
     Active Substance: ENOXAPARIN SODIUM
     Indication: TARDIVE DYSKINESIA
     Dosage: 150.0 MILLIGRAM; 1 EVERY 1 DAY(S) (QD)
     Route: 058
     Dates: start: 20161222
  43. ENOXAPARIN SODIUM. [Suspect]
     Active Substance: ENOXAPARIN SODIUM
     Dosage: UNK, 1 EVERY 1 DAYS (QD)
     Route: 058
  44. LORAZEPAM. [Suspect]
     Active Substance: LORAZEPAM
     Indication: TARDIVE DYSKINESIA
     Dosage: DOSAGE FORM NOT SPECIFIED; 2 EVERY 1 DAY
     Route: 048
  45. METOCLOPRAMIDE. [Suspect]
     Active Substance: METOCLOPRAMIDE
     Dosage: 4 EVERY 1 DAY (QID)
     Route: 048
  46. PACLITAXEL. [Suspect]
     Active Substance: PACLITAXEL
     Dosage: UNK; DOSAGE FORM: LIQUID INTRAVENOUS
     Route: 065
  47. PROCYTOX [Suspect]
     Active Substance: CYCLOPHOSPHAMIDE
     Indication: TARDIVE DYSKINESIA
     Dosage: 243 MILLIGRAM, UNK
     Route: 042
  48. PROCYTOX [Suspect]
     Active Substance: CYCLOPHOSPHAMIDE
     Dosage: DOSAGE FORM NOT SPECIFIED
     Route: 042
  49. RANITIDINE. [Suspect]
     Active Substance: RANITIDINE
     Indication: TARDIVE DYSKINESIA
     Dosage: 2 EVERY 1 DAY
     Route: 048
  50. RANITIDINE. [Suspect]
     Active Substance: RANITIDINE
     Dosage: 150 MILLIGRAM, 1 EVERY 2 WEEKS (CYCLICAL)
     Route: 048
  51. TYLENOL WITH CODEINE [Suspect]
     Active Substance: ACETAMINOPHEN\CODEINE PHOSPHATE
     Dosage: DOSAGE FORM NOT SPECIFIED; 1 EVERY 4 HOURS
     Route: 065
  52. ONDANSETRON HYDROCHLORIDE. [Suspect]
     Active Substance: ONDANSETRON HYDROCHLORIDE
     Dosage: UNK
     Route: 048
  53. ONDANSETRON HYDROCHLORIDE. [Suspect]
     Active Substance: ONDANSETRON HYDROCHLORIDE
     Dosage: UNK
     Route: 048
  54. NEUPOGEN [Suspect]
     Active Substance: FILGRASTIM
     Dosage: 480 MILLIGRAM; 1 EVERY 1 DAY(S) (QD)
     Route: 048
  55. NEUPOGEN [Suspect]
     Active Substance: FILGRASTIM
     Dosage: UNK, 1 EVERY 1 DAYS (QD)
     Route: 065
  56. NEUPOGEN [Suspect]
     Active Substance: FILGRASTIM
     Dosage: UNK, 1 EVERY 1 DAYS (QD)
     Route: 065
  57. APREPITANT. [Suspect]
     Active Substance: APREPITANT
     Dosage: UNK, EVERY DAY
     Route: 048
  58. FOSAPREPITANT DIMEGLUMINE. [Suspect]
     Active Substance: FOSAPREPITANT DIMEGLUMINE
     Dosage: DOSAGE FORM: POWDER FOR SOLUTION FOR INJECTION; 125 MILLIGRAM, QD
     Route: 048
  59. DOXORUBICIN HYDROCHLORIDE. [Suspect]
     Active Substance: DOXORUBICIN HYDROCHLORIDE
     Dosage: 136 MILLIGRAM, EVERY 2 WEEKS
     Route: 042
  60. ENOXAPARIN SODIUM. [Suspect]
     Active Substance: ENOXAPARIN SODIUM
     Dosage: UNK, 1 EVERY 1 DAYS (QD)
     Route: 058
  61. PACLITAXEL. [Suspect]
     Active Substance: PACLITAXEL
     Indication: SUPPORTIVE CARE
     Dosage: 393 MILLIGRAM, UNK; DOSAGE FORM: LIQUID INTRAVENOUS
     Route: 042
  62. PACLITAXEL. [Suspect]
     Active Substance: PACLITAXEL
     Dosage: 243 MILLIGRAM, UNK; DOSAGE FORM: LIQUID INTRAVENOUS
     Route: 042
  63. PACLITAXEL. [Suspect]
     Active Substance: PACLITAXEL
     Dosage: UNK; DOSAGE FORM: LIQUID INTRAVENOUS
     Route: 065
  64. PACLITAXEL. [Suspect]
     Active Substance: PACLITAXEL
     Dosage: DOSAGE FORM: LIQUID INTRAVENOUS
     Route: 042
  65. PACLITAXEL. [Suspect]
     Active Substance: PACLITAXEL
     Dosage: UNK; DOSAGE FORM: LIQUID INTRAVENOUS
     Route: 065
  66. PROCYTOX [Suspect]
     Active Substance: CYCLOPHOSPHAMIDE
     Indication: BREAST CANCER
     Dosage: 1360 MG, 1 EVERY 2 WEEKS (CYCLICAL)
     Route: 042
  67. PROCYTOX [Suspect]
     Active Substance: CYCLOPHOSPHAMIDE
     Dosage: 1360 MG, 1 EVERY 14 DAYS
     Route: 042
  68. PROCYTOX [Suspect]
     Active Substance: CYCLOPHOSPHAMIDE
     Dosage: 1360 MG, 1 EVERY 2 WEEKS (CYCLICAL)
     Route: 042
  69. PROCYTOX [Suspect]
     Active Substance: CYCLOPHOSPHAMIDE
     Dosage: 1360 MG, 1 EVERY 14 DAYS
     Route: 042
  70. TRASTUZUMAB. [Suspect]
     Active Substance: TRASTUZUMAB
     Dosage: UNK
     Route: 065
  71. TRASTUZUMAB. [Suspect]
     Active Substance: TRASTUZUMAB
     Dosage: UNK
     Route: 065
  72. NEUPOGEN [Suspect]
     Active Substance: FILGRASTIM
     Dosage: 125 MILLIGRAM; 1 EVERY 1 DAY(S) (QD)
     Route: 048
  73. DIPROSONE [Suspect]
     Active Substance: BETAMETHASONE DIPROPIONATE
     Dosage: 1 EVERY 12 HOURS
     Route: 048
  74. APREPITANT. [Suspect]
     Active Substance: APREPITANT
     Dosage: UNK, EVERY DAY
     Route: 048
  75. APREPITANT. [Suspect]
     Active Substance: APREPITANT
     Dosage: UNK, EVERY DAY
     Route: 048
  76. LORAZEPAM. [Suspect]
     Active Substance: LORAZEPAM
     Dosage: DOSAGE FORM NOT SPECIFIED; 2 EVERY 1 DAY
     Route: 048
  77. LORAZEPAM. [Suspect]
     Active Substance: LORAZEPAM
     Dosage: DOSAGE FORM NOT SPECIFIED; 2 EVERY 1 DAY
     Route: 048
  78. METOCLOPRAMIDE. [Suspect]
     Active Substance: METOCLOPRAMIDE
     Indication: TARDIVE DYSKINESIA
     Dosage: 4 EVERY 1 DAY (QID)
     Route: 048
  79. METOCLOPRAMIDE. [Suspect]
     Active Substance: METOCLOPRAMIDE
     Dosage: 4 EVERY 1 DAY (QID)
     Route: 048
  80. PACLITAXEL. [Suspect]
     Active Substance: PACLITAXEL
     Indication: BREAST CANCER
     Dosage: 303 MILLIGRAM, UNK; DOSAGE FORM: LIQUID INTRAVENOUS
     Route: 042
  81. PROCYTOX [Suspect]
     Active Substance: CYCLOPHOSPHAMIDE
     Dosage: 1360 MG
     Route: 042
  82. PROCYTOX [Suspect]
     Active Substance: CYCLOPHOSPHAMIDE
     Dosage: 1360 MG, 1 EVERY 2 WEEKS (CYCLICAL)
     Route: 042
  83. TRASTUZUMAB. [Suspect]
     Active Substance: TRASTUZUMAB
     Dosage: 866.0 MILLIGRAM
     Route: 065
  84. TRASTUZUMAB. [Suspect]
     Active Substance: TRASTUZUMAB
     Dosage: UNK
     Route: 065
  85. TRASTUZUMAB. [Suspect]
     Active Substance: TRASTUZUMAB
     Dosage: UNK
     Route: 065
  86. DIPROSONE [Suspect]
     Active Substance: BETAMETHASONE DIPROPIONATE
     Dosage: 1 EVERY 12 HOURS
     Route: 048
  87. DIPROSONE [Suspect]
     Active Substance: BETAMETHASONE DIPROPIONATE
     Dosage: 2 EVERY 1 DAYS, (BID)
     Route: 065
  88. DIPROSONE [Suspect]
     Active Substance: BETAMETHASONE DIPROPIONATE
     Dosage: 1 EVERY 12 HOURS
     Route: 048
  89. DIPROSONE [Suspect]
     Active Substance: BETAMETHASONE DIPROPIONATE
     Dosage: 1 EVERY 12 HOURS
     Route: 048
  90. APREPITANT. [Suspect]
     Active Substance: APREPITANT
     Indication: SUPPORTIVE CARE
     Dosage: 80.0 MILLIGRAM; 1 EVERY 1 DAY(S) (QD)
     Route: 048
  91. LORAZEPAM. [Suspect]
     Active Substance: LORAZEPAM
     Dosage: DOSAGE FORM NOT SPECIFIED; 1 EVERY 12 HOURS
     Route: 048
  92. PACLITAXEL. [Suspect]
     Active Substance: PACLITAXEL
     Dosage: DOSAGE FORM: LIQUID INTRAVENOUS
     Route: 042
  93. PROCYTOX [Suspect]
     Active Substance: CYCLOPHOSPHAMIDE
     Dosage: DOSAGE FORM NOT SPECIFIED
     Route: 042
  94. TYLENOL WITH CODEINE [Suspect]
     Active Substance: ACETAMINOPHEN\CODEINE PHOSPHATE
     Dosage: DOSAGE FORM NOT SPECIFIED; 1 EVERY 4 HOURS
     Route: 065
  95. FOSAPREPITANT DIMEGLUMINE. [Suspect]
     Active Substance: FOSAPREPITANT DIMEGLUMINE
     Indication: SUPPORTIVE CARE
     Dosage: DOSAGE FORM: POWDER FOR SOLUTION FOR INJECTION; 80.0 MILLIGRAM, 1 EVERY 1 DAY(S) (QD)
     Route: 048
  96. DEXAMETHASONE. [Suspect]
     Active Substance: DEXAMETHASONE
     Dosage: UNK
     Route: 048
  97. ENOXAPARIN SODIUM. [Suspect]
     Active Substance: ENOXAPARIN SODIUM
     Dosage: UNK, 1 EVERY 1 DAYS (QD)
     Route: 058
  98. LEVOFLOXACIN. [Suspect]
     Active Substance: LEVOFLOXACIN
     Dosage: 500 MILLIGRAM
     Route: 048
  99. LEVOFLOXACIN. [Suspect]
     Active Substance: LEVOFLOXACIN
     Dosage: DOSAGE FORM NOT SPECIFIED; 1 EVERY 1 DAYS
     Route: 048
  100. PACLITAXEL. [Suspect]
     Active Substance: PACLITAXEL
     Dosage: DOSAGE FORM: LIQUID INTRAVENOUS
     Route: 042
  101. PACLITAXEL. [Suspect]
     Active Substance: PACLITAXEL
     Dosage: 393 MILLIGRAM
     Route: 042
  102. PACLITAXEL. [Suspect]
     Active Substance: PACLITAXEL
     Dosage: DOSAGE FORM: LIQUID INTRAVENOUS
     Route: 042
  103. PACLITAXEL. [Suspect]
     Active Substance: PACLITAXEL
     Dosage: UNK; DOSAGE FORM: LIQUID INTRAVENOUS
     Route: 065
  104. PROCYTOX [Suspect]
     Active Substance: CYCLOPHOSPHAMIDE
     Dosage: 1360 MG, 1 EVERY 14 DAYS
     Route: 042
  105. RANITIDINE. [Suspect]
     Active Substance: RANITIDINE
     Dosage: 2 EVERY 1 DAY
     Route: 048
  106. TYLENOL WITH CODEINE [Suspect]
     Active Substance: ACETAMINOPHEN\CODEINE PHOSPHATE
     Indication: TARDIVE DYSKINESIA
     Dosage: STRENGTH: 160 MG (+) 8MG/5ML, 30.0 MILLIGRAM; 1 EVERY 4 HOUR(S)/ 6 EVERY 1 DAY(S) (Q4H)
     Route: 065
  107. TYLENOL WITH CODEINE [Suspect]
     Active Substance: ACETAMINOPHEN\CODEINE PHOSPHATE
     Dosage: DOSAGE FORM NOT SPECIFIED; 1 EVERY 4 HOURS
     Route: 065
  108. DIPROSONE [Suspect]
     Active Substance: BETAMETHASONE DIPROPIONATE
     Dosage: 2 EVERY 1 DAYS, (BID)
     Route: 065
  109. LEVOFLOXACIN. [Suspect]
     Active Substance: LEVOFLOXACIN
     Indication: TARDIVE DYSKINESIA
     Dosage: 500.0 MILLIGRAM; 1 EVERY 1 DAY(S) (QD), DOSAGE FORM NOT SPECIFIED
     Route: 048
  110. LEVOFLOXACIN. [Suspect]
     Active Substance: LEVOFLOXACIN
     Dosage: DOSAGE FORM NOT SPECIFIED; 1 EVERY 1 DAYS
     Route: 048
  111. LORAZEPAM. [Suspect]
     Active Substance: LORAZEPAM
     Dosage: DOSAGE FORM NOT SPECIFIED; 2 EVERY 1 DAY
     Route: 048
  112. METOCLOPRAMIDE. [Suspect]
     Active Substance: METOCLOPRAMIDE
     Dosage: 1 EVERY 6 HOURS
     Route: 048
  113. PACLITAXEL. [Suspect]
     Active Substance: PACLITAXEL
     Dosage: 303 MILLIGRAM, UNK
     Route: 042
  114. PACLITAXEL. [Suspect]
     Active Substance: PACLITAXEL
     Dosage: UNK; DOSAGE FORM: LIQUID INTRAVENOUS
     Route: 065
  115. PROCYTOX [Suspect]
     Active Substance: CYCLOPHOSPHAMIDE
     Dosage: DOSAGE FORM NOT SPECIFIED
     Route: 042
  116. PROCYTOX [Suspect]
     Active Substance: CYCLOPHOSPHAMIDE
     Dosage: DOSAGE FORM NOT SPECIFIED
     Route: 042
  117. PROCYTOX [Suspect]
     Active Substance: CYCLOPHOSPHAMIDE
     Dosage: 1360 MG
     Route: 042
  118. PROCYTOX [Suspect]
     Active Substance: CYCLOPHOSPHAMIDE
     Dosage: DOSAGE FORM NOT SPECIFIED
     Route: 042
  119. PROCYTOX [Suspect]
     Active Substance: CYCLOPHOSPHAMIDE
     Dosage: 1360 MG
     Route: 042
  120. TRASTUZUMAB. [Suspect]
     Active Substance: TRASTUZUMAB
     Indication: TARDIVE DYSKINESIA
     Dosage: 626.0 MILLIGRAM
     Route: 065
  121. TRASTUZUMAB. [Suspect]
     Active Substance: TRASTUZUMAB
     Dosage: 866.0 MILLIGRAM
     Route: 065
  122. ZOFRAN [Suspect]
     Active Substance: ONDANSETRON HYDROCHLORIDE
     Indication: SUPPORTIVE CARE
     Dosage: 8.0 MILLIGRAM
     Route: 048
  123. NEUPOGEN [Suspect]
     Active Substance: FILGRASTIM
     Indication: SUPPORTIVE CARE
     Dosage: 480 MICROGRAM, 1 EVERY 1 DAY (QD)
     Route: 065
  124. NEUPOGEN [Suspect]
     Active Substance: FILGRASTIM
     Dosage: UNK, 1 EVERY 1 DAYS (QD)
     Route: 065
  125. NEULASTA [Suspect]
     Active Substance: PEGFILGRASTIM
     Indication: SUPPORTIVE CARE
     Dosage: 6 MILLIGRAM
     Route: 058

REACTIONS (11)
  - Fatigue [Recovered/Resolved]
  - Off label use [Recovered/Resolved]
  - Computerised tomogram thorax abnormal [Recovered/Resolved]
  - Gastrointestinal disorder [Recovered/Resolved]
  - Hypoxia [Recovered/Resolved]
  - Rash [Recovered/Resolved]
  - Cough [Recovered/Resolved]
  - Atelectasis [Recovered/Resolved]
  - Nausea [Recovered/Resolved]
  - Pyrexia [Recovered/Resolved]
  - Dyspnoea [Recovered/Resolved]

NARRATIVE: CASE EVENT DATE: 20170203
